FAERS Safety Report 10625860 (Version 1)
Quarter: 2014Q4

REPORT INFORMATION
  Report Type: Spontaneous
  Country: CH (occurrence: CH)
  Receive Date: 20141204
  Receipt Date: 20141204
  Transmission Date: 20150529
  Serious: Yes (Hospitalization)
  Sender: FDA-Public Use
  Company Number: CH-SA-2014SA164261

PATIENT
  Age: 64 Year
  Sex: Female

DRUGS (4)
  1. MEPHAMESON /00016002/ [Concomitant]
     Route: 040
     Dates: start: 20140728, end: 20140728
  2. ELOXATIN [Suspect]
     Active Substance: OXALIPLATIN
     Indication: RECTAL ADENOCARCINOMA
     Dosage: INFUSION
     Route: 040
     Dates: start: 20140728, end: 20140728
  3. ELOXATIN [Suspect]
     Active Substance: OXALIPLATIN
     Indication: RECTAL ADENOCARCINOMA
     Dosage: INFUSION
     Route: 040
     Dates: start: 20140728, end: 20140728
  4. ZOFRAN [Concomitant]
     Active Substance: ONDANSETRON HYDROCHLORIDE
     Route: 040
     Dates: start: 20140728, end: 20140728

REACTIONS (6)
  - Laryngospasm [Recovered/Resolved]
  - Tetany [Recovered/Resolved]
  - Muscle spasms [Recovered/Resolved]
  - Hypocalcaemia [Recovered/Resolved]
  - Speech disorder [Recovered/Resolved]
  - Bronchospasm [Recovered/Resolved]

NARRATIVE: CASE EVENT DATE: 20140728
